FAERS Safety Report 10083852 (Version 1)
Quarter: 2014Q2

REPORT INFORMATION
  Report Type: Spontaneous
  Country: US (occurrence: US)
  Receive Date: 20140417
  Receipt Date: 20140417
  Transmission Date: 20141212
  Serious: Yes (Other)
  Sender: FDA-Public Use
  Company Number: US-PFIZER INC-2014105886

PATIENT
  Age: 30 Year
  Sex: Male

DRUGS (2)
  1. CHANTIX [Suspect]
     Indication: SMOKING CESSATION THERAPY
     Dosage: UNK
  2. ATIVAN [Concomitant]
     Indication: ABNORMAL BEHAVIOUR
     Dosage: 1 MG/DAY

REACTIONS (7)
  - Suicidal ideation [Unknown]
  - Aggression [Unknown]
  - Aggression [Unknown]
  - Abnormal behaviour [Unknown]
  - Impatience [Unknown]
  - Nightmare [Unknown]
  - Erectile dysfunction [Unknown]
